FAERS Safety Report 8135762-3 (Version None)
Quarter: 2012Q1

REPORT INFORMATION
  Report Type: 
  Country: None (occurrence: None)
  Receive Date: 20120103
  Receipt Date: 20111103
  Transmission Date: 20120608
  Serious: No
  Sender: FDA-Public Use
  Company Number: AE-2011-003074

PATIENT
  Age: 51 Year
  Sex: Male
  Weight: 88.4514 kg

DRUGS (5)
  1. PEGASYS [Concomitant]
  2. LISINOPRIL [Concomitant]
  3. INCIVEK [Suspect]
     Dosage: 2250 (750 MG, 1 IN 8 HR), ORAL
     Route: 048
     Dates: start: 20111016
  4. RIBAVIRIN [Concomitant]
  5. LEVOTHYROXINE SODIUM [Concomitant]

REACTIONS (1)
  - DIZZINESS [None]
